FAERS Safety Report 5604885-2 (Version None)
Quarter: 2008Q1

REPORT INFORMATION
  Report Type: 
  Country: None (occurrence: None)
  Receive Date: 20080128
  Receipt Date: 20080117
  Transmission Date: 20080703
  Serious: Yes (Hospitalization)
  Sender: FDA-Public Use
  Company Number: TW-ASTRAZENECA-2008AC00215

PATIENT
  Age: 83 Year
  Sex: Male

DRUGS (9)
  1. ROSUVASTATIN [Suspect]
     Indication: HYPERCHOLESTEROLAEMIA
  2. CYCLOSPORINE [Concomitant]
     Indication: IMMUNOSUPPRESSION
  3. PREDNISOLONE [Concomitant]
     Indication: IMMUNOSUPPRESSION
  4. PREDNISOLONE [Concomitant]
     Dosage: TAPERED TO 10MG DAILY
  5. DOXAZOSIN [Concomitant]
  6. CALCIUM CARBONATE [Concomitant]
  7. FOLIC ACID [Concomitant]
  8. RABEPRAZOLE SODIUM [Concomitant]
  9. PROHEPARUM [Concomitant]

REACTIONS (1)
  - LUNG INJURY [None]
